FAERS Safety Report 17185072 (Version 1)
Quarter: 2019Q4

REPORT INFORMATION
  Report Type: Spontaneous
  Country: MY (occurrence: MY)
  Receive Date: 20191220
  Receipt Date: 20191220
  Transmission Date: 20200122
  Serious: Yes (Other)
  Sender: FDA-Public Use
  Company Number: MY-PFIZER INC-2019544213

PATIENT
  Age: 84 Year
  Sex: Male

DRUGS (1)
  1. POTASSIUM PHOSPHATE MONOBASIC [Suspect]
     Active Substance: POTASSIUM PHOSPHATE, MONOBASIC
     Indication: HYPOPHOSPHATAEMIA
     Dosage: 10 MMOL, 1X/DAY
     Route: 042

REACTIONS (5)
  - Confusional state [Recovering/Resolving]
  - Chills [Recovered/Resolved]
  - Palpitations [Recovering/Resolving]
  - Restlessness [Recovering/Resolving]
  - Pyrexia [Recovering/Resolving]
